FAERS Safety Report 9105656 (Version 1)
Quarter: 2013Q1

REPORT INFORMATION
  Report Type: Spontaneous
  Country: AU (occurrence: AU)
  Receive Date: 20130220
  Receipt Date: 20130220
  Transmission Date: 20140127
  Serious: Yes (Hospitalization)
  Sender: FDA-Public Use
  Company Number: AU-COVIDIEN/TYCO HEALTHCARE/MALLINCKRODT-T201300857

PATIENT
  Sex: Female

DRUGS (1)
  1. EXALGO EXTENDED RELEASE [Suspect]
     Indication: BACK PAIN
     Dosage: 8 MG, 2 IN 1 DAY
     Route: 048

REACTIONS (1)
  - Medication error [Unknown]
